FAERS Safety Report 9749536 (Version 1)
Quarter: 2013Q4

REPORT INFORMATION
  Report Type: Spontaneous
  Country: JP (occurrence: JP)
  Receive Date: 20131212
  Receipt Date: 20131212
  Transmission Date: 20140711
  Serious: Yes (Other)
  Sender: FDA-Public Use
  Company Number: JP-BAYER-2013-149492

PATIENT
  Sex: Female

DRUGS (5)
  1. YAZ [Suspect]
     Indication: UTERINE LEIOMYOMA
     Dosage: UNK
     Route: 048
     Dates: start: 2011
  2. YAZ [Suspect]
     Indication: UTERINE LEIOMYOMA
     Dosage: UNK
     Route: 048
  3. YAZ [Suspect]
     Indication: UTERINE LEIOMYOMA
     Dosage: UNK
     Route: 048
     Dates: start: 201308, end: 201312
  4. YAZ [Suspect]
     Indication: UTERINE LEIOMYOMA
  5. YAZ [Suspect]
     Indication: UTERINE LEIOMYOMA

REACTIONS (4)
  - Glaucoma [None]
  - Off label use [None]
  - Therapeutic response unexpected [None]
  - Therapeutic response unexpected [None]
